FAERS Safety Report 26116245 (Version 1)
Quarter: 2025Q4

REPORT INFORMATION
  Report Type: Other
  Country: GB (occurrence: GB)
  Receive Date: 20251203
  Receipt Date: 20251203
  Transmission Date: 20260117
  Serious: Yes (Other)
  Sender: ASPEN
  Company Number: None

PATIENT

DRUGS (15)
  1. DEXAMETHASONE [Suspect]
     Active Substance: DEXAMETHASONE
     Indication: Product used for unknown indication
     Dosage: 8 MILLIGRAM, TAKE FOUR TABLETS AT 8AM AND MIDDAY DAILY
     Route: 065
     Dates: start: 20250929, end: 20251104
  2. FEXOFENADINE [Concomitant]
     Active Substance: FEXOFENADINE HYDROCHLORIDE
     Indication: Ill-defined disorder
     Dosage: TAKE ONE DAILY
     Route: 065
     Dates: start: 20250828, end: 20250927
  3. CETIRIZINE [Concomitant]
     Active Substance: CETIRIZINE HYDROCHLORIDE
     Indication: Ill-defined disorder
     Dosage: TAKE UP TO FIVE DAILY AS TOLERATED
     Route: 065
     Dates: start: 20250828, end: 20250927
  4. MORPHINE SULFATE [Concomitant]
     Active Substance: MORPHINE SULFATE
     Indication: Ill-defined disorder
     Dosage: 5ML UP TO TWICE DAILY FOR PAIN
     Route: 065
     Dates: start: 20251107
  5. Blephaclean [Concomitant]
     Indication: Ill-defined disorder
     Dosage: USE AS DIRECTED
     Route: 065
     Dates: start: 20241121
  6. DIAZEPAM [Concomitant]
     Active Substance: DIAZEPAM
     Indication: Ill-defined disorder
     Dosage: TAKE ONE TABLET IF NEEDED. MAXIMUM OF TWO A DAY
     Route: 065
     Dates: start: 20241121, end: 20251118
  7. Hylo forte [Concomitant]
     Indication: Ill-defined disorder
     Dosage: ADMINITER ONE DROP INTO BOTH EYES WHEN NEEDED F...
     Route: 065
     Dates: start: 20250214
  8. Hylo night [Concomitant]
     Indication: Ill-defined disorder
     Dosage: APPLY TO BOTH EYES AT NIGHT IF NEEDED
     Route: 065
     Dates: start: 20250718
  9. RANITIDINE HYDROCHLORIDE [Concomitant]
     Active Substance: RANITIDINE HYDROCHLORIDE
     Indication: Ill-defined disorder
     Dosage: 2X5ML SPOON FOUR TIMES DAILY, (WITH MEALS AND N...
     Route: 065
     Dates: start: 20250917
  10. OMEPRAZOLE [Concomitant]
     Active Substance: OMEPRAZOLE
     Indication: Ill-defined disorder
     Dosage: ONE CAPSULE DAILY TO PREVENT INDIGESTION
     Route: 065
     Dates: start: 20250917, end: 20251104
  11. LEVETIRACETAM [Concomitant]
     Active Substance: LEVETIRACETAM
     Indication: Ill-defined disorder
     Dosage: TAKE ONE TABLET TWICE DAILY
     Route: 065
     Dates: start: 20250929
  12. ACETAMINOPHEN [Concomitant]
     Active Substance: ACETAMINOPHEN
     Indication: Ill-defined disorder
     Dosage: ONE OR TWO TABLETS UPTO FOUR TIMES DAILY FOR PAIN
     Route: 065
     Dates: start: 20250929
  13. SENNA [Concomitant]
     Active Substance: SENNOSIDES
     Indication: Ill-defined disorder
     Dosage: TAKE 1 OR 2 AT NIGHT IF NEEDED FOR CONSTIPATION
     Route: 065
     Dates: start: 20250929
  14. CYANOCOBALAMIN [Concomitant]
     Active Substance: CYANOCOBALAMIN
     Indication: Ill-defined disorder
     Dosage: 1 TABLET DAILY
     Route: 065
     Dates: start: 20251104
  15. LANSOPRAZOLE [Concomitant]
     Active Substance: LANSOPRAZOLE
     Indication: Ill-defined disorder
     Dosage: ONE CAPSULE IN THE MORNING, TO PREVENT INDIGEST...
     Dates: start: 20251104

REACTIONS (2)
  - Psychotic disorder [Unknown]
  - Mental status changes [Recovered/Resolved]
